FAERS Safety Report 4712858-7 (Version None)
Quarter: 2005Q3

REPORT INFORMATION
  Report Type: 
  Country: None (occurrence: None)
  Receive Date: 20050713
  Receipt Date: 19981204
  Transmission Date: 20060218
  Serious: Yes (Hospitalization)
  Sender: FDA-Public Use
  Company Number: 1998AS00304

PATIENT
  Age: 57 Day
  Sex: Male
  Weight: 2.1 kg

DRUGS (1)
  1. ROPIVACAINE HYDROCHLORIDE [Suspect]
     Route: 008
     Dates: start: 19981025, end: 19981025

REACTIONS (3)
  - BRADYCARDIA [None]
  - NEONATAL APNOEIC ATTACK [None]
  - PALLOR [None]
